FAERS Safety Report 11514646 (Version 1)
Quarter: 2015Q3

REPORT INFORMATION
  Report Type: Spontaneous
  Country: US (occurrence: US)
  Receive Date: 20150916
  Receipt Date: 20150916
  Transmission Date: 20151125
  Serious: No
  Sender: FDA-Public Use
  Company Number: US-MYLANLABS-2015M1025617

PATIENT
  Sex: Female

DRUGS (1)
  1. IFOSFAMIDE INJECTION [Suspect]
     Active Substance: IFOSFAMIDE
     Dosage: 10G OVER 24H
     Route: 042
     Dates: start: 20150302, end: 20150302

REACTIONS (2)
  - Disorientation [Recovered/Resolved]
  - Incontinence [Recovered/Resolved]

NARRATIVE: CASE EVENT DATE: 20150302
